FAERS Safety Report 10671156 (Version 1)
Quarter: 2014Q4

REPORT INFORMATION
  Report Type: Spontaneous
  Country: GB (occurrence: None)
  Receive Date: 20141219
  Receipt Date: 20141219
  Transmission Date: 20150529
  Serious: Yes (Disabling)
  Sender: FDA-Public Use
  Company Number: 2668631

PATIENT
  Age: 57 Year
  Sex: Male

DRUGS (8)
  1. (MEROPENEM) [Concomitant]
     Active Substance: MEROPENEM
  2. (MESALAZINE) [Concomitant]
  3. (FELODIPINE) [Concomitant]
  4. (RAMIPRIL) [Concomitant]
  5. (GENTAMICIN SULFATE) [Suspect]
     Active Substance: GENTAMICIN SULFATE
     Indication: SEPSIS
     Dosage: (NOT OTHERWISE SPECIFIED)
     Route: 042
     Dates: start: 20141124, end: 20141124
  6. (BENDROFLUMETHIAZIDE) [Concomitant]
  7. (CLARITHROMYCIN) [Concomitant]
  8. (PARACETAMOL) [Concomitant]

REACTIONS (4)
  - Ear pain [None]
  - Deafness [None]
  - Feeling abnormal [None]
  - Ototoxicity [None]

NARRATIVE: CASE EVENT DATE: 20141124
